FAERS Safety Report 24535137 (Version 1)
Quarter: 2024Q4

REPORT INFORMATION
  Report Type: Spontaneous
  Country: AU (occurrence: AU)
  Receive Date: 20241022
  Receipt Date: 20241022
  Transmission Date: 20250114
  Serious: Yes (Other)
  Sender: SANDOZ
  Company Number: AU-MYLANLABS-2024M1082284

PATIENT
  Age: 59 Year
  Sex: Female

DRUGS (10)
  1. FLUTICASONE PROPIONATE [Suspect]
     Active Substance: FLUTICASONE PROPIONATE
     Indication: Lichen planus
     Dosage: UNK
     Route: 065
  2. FLUTICASONE PROPIONATE [Suspect]
     Active Substance: FLUTICASONE PROPIONATE
     Indication: Oesophageal disorder
     Dosage: UNK METERED DOSE INHALER
     Route: 048
  3. METHOTREXATE [Suspect]
     Active Substance: METHOTREXATE
     Indication: Lichen planus
     Dosage: 7.5 MG, QW
     Route: 065
  4. METHOTREXATE [Suspect]
     Active Substance: METHOTREXATE
     Dosage: 8 MG, QW
     Route: 065
  5. METHOTREXATE [Suspect]
     Active Substance: METHOTREXATE
     Indication: Oesophageal disorder
     Dosage: UNK
     Route: 065
  6. PREDNISOLONE [Suspect]
     Active Substance: PREDNISOLONE
     Indication: Oesophageal disorder
     Dosage: 10 MG, QD
     Route: 065
  7. PREDNISOLONE [Suspect]
     Active Substance: PREDNISOLONE
     Indication: Lichen planus
     Dosage: UNK
     Route: 065
  8. RABEPRAZOLE SODIUM [Suspect]
     Active Substance: RABEPRAZOLE SODIUM
     Indication: Dysphagia
     Dosage: 20 MG, QD
     Route: 065
  9. TOCILIZUMAB [Suspect]
     Active Substance: TOCILIZUMAB
     Indication: Lichen planus
     Dosage: 160 UG, QW , INJECTION
     Route: 058
  10. TOCILIZUMAB [Suspect]
     Active Substance: TOCILIZUMAB
     Indication: Oesophageal disorder

REACTIONS (3)
  - Immunodeficiency [Unknown]
  - Off label use [Unknown]
  - Drug ineffective [Unknown]
